FAERS Safety Report 7008576-5 (Version None)
Quarter: 2010Q3

REPORT INFORMATION
  Report Type: 
  Country: None (occurrence: None)
  Receive Date: 20100922
  Receipt Date: 20100901
  Transmission Date: 20110219
  Serious: No
  Sender: FDA-Public Use
  Company Number: US-PFIZER INC-2010111248

PATIENT
  Sex: Male

DRUGS (4)
  1. SERTRALINE HYDROCHLORIDE [Suspect]
     Indication: ANXIETY
     Dosage: 50 MG, 1X/DAY
     Dates: start: 20080101
  2. SERTRALINE HYDROCHLORIDE [Suspect]
     Dosage: 50 MG, 2X/DAY
     Dates: start: 20080101
  3. SERTRALINE HYDROCHLORIDE [Suspect]
     Dosage: 50 MG, 1X/DAY
  4. SERTRALINE HYDROCHLORIDE [Suspect]
     Dosage: UNK
     Route: 048
     Dates: start: 20100101

REACTIONS (1)
  - MUSCULOSKELETAL STIFFNESS [None]
